FAERS Safety Report 14332069 (Version 7)
Quarter: 2019Q2

REPORT INFORMATION
  Report Type: Spontaneous
  Country: DE (occurrence: DE)
  Receive Date: 20171228
  Receipt Date: 20190516
  Transmission Date: 20190711
  Serious: Yes (Death, Hospitalization)
  Sender: FDA-Public Use
  Company Number: DE-AUROBINDO-AUR-APL-2017-47223

PATIENT

DRUGS (62)
  1. HYDROMORPHONE [Suspect]
     Active Substance: HYDROMORPHONE
     Dosage: 8 MG, TID
     Route: 048
     Dates: start: 20180226
  2. TRAMETINIB [Suspect]
     Active Substance: TRAMETINIB
     Dosage: 2 MILLIGRAM, ONCE A DAY, 2 MG, QD
     Route: 048
     Dates: start: 20161123
  3. CIPRALEX [Concomitant]
     Active Substance: ESCITALOPRAM OXALATE
     Dosage: 10 MG, QD
     Route: 048
     Dates: start: 20180312
  4. IBUPROFEN. [Concomitant]
     Active Substance: IBUPROFEN
     Indication: MALIGNANT MELANOMA
  5. ZOFRAN [Concomitant]
     Active Substance: ONDANSETRON HYDROCHLORIDE
     Dosage: 4 MG, TID
     Route: 042
     Dates: start: 20180227, end: 20180302
  6. DEXAMETHASONE. [Concomitant]
     Active Substance: DEXAMETHASONE
     Dosage: 8 MG, TID
     Route: 042
     Dates: start: 20180226, end: 20180301
  7. NIVOLUMAB BMS [Concomitant]
     Active Substance: NIVOLUMAB
     Indication: MALIGNANT MELANOMA
     Dosage: 1 MG/KG, Q3W
     Route: 042
     Dates: start: 20181024, end: 20181024
  8. HYDROMORPHONE [Suspect]
     Active Substance: HYDROMORPHONE
     Indication: MALIGNANT MELANOMA
     Dosage: 8 MILLIGRAM, ONCE A DAY, 4 MG, BID
     Route: 048
     Dates: start: 20170407
  9. TAFINLAR [Suspect]
     Active Substance: DABRAFENIB MESYLATE
     Indication: METASTATIC MALIGNANT MELANOMA
     Dosage: 300 MILLIGRAM, TWO TIMES A DAY, 150 MG, BID
     Route: 048
     Dates: start: 20161117, end: 20180513
  10. CIPRALEX [Concomitant]
     Active Substance: ESCITALOPRAM OXALATE
     Indication: DEPRESSION
     Dosage: 10 MILLIGRAM, ONCE A DAY, 10 MG, QD
     Route: 048
     Dates: start: 20170518
  11. METOCLOPRAMIDE. [Concomitant]
     Active Substance: METOCLOPRAMIDE
     Indication: MALIGNANT MELANOMA
     Dosage: 10 MG, TWO TIMES A DAY
     Route: 048
     Dates: start: 20170118
  12. ZOFRAN [Concomitant]
     Active Substance: ONDANSETRON HYDROCHLORIDE
     Indication: MALIGNANT MELANOMA
     Dosage: 16 MILLIGRAM, ONCE A DAY, 8 MG, BID
     Route: 048
     Dates: start: 20161115
  13. PREGABA [Concomitant]
     Active Substance: PREGABALIN
     Dosage: 150 MILLIGRAM, ONCE A DAY, 75 MG, BID
     Route: 048
     Dates: start: 20170906
  14. PREGABA [Concomitant]
     Active Substance: PREGABALIN
     Dosage: 100 MG, QD
     Route: 048
     Dates: start: 20180225
  15. MOVICOL [Concomitant]
     Active Substance: POLYETHYLENE GLYCOL 3350\POTASSIUM CHLORIDE\SODIUM BICARBONATE\SODIUM CHLORIDE
     Indication: PRODUCT USED FOR UNKNOWN INDICATION
     Dosage: 13.81 GRAM, ONCE A DAY, 13.81 G, QD
     Route: 048
     Dates: start: 20170829, end: 20171128
  16. BIFITERAL [Concomitant]
     Active Substance: LACTULOSE
     Indication: PRODUCT USED FOR UNKNOWN INDICATION
     Dosage: 10 GRAM, ONCE A DAY
     Route: 048
     Dates: start: 20180225, end: 20180225
  17. BETAHISTIN [Concomitant]
     Active Substance: BETAHISTINE
     Indication: PRODUCT USED FOR UNKNOWN INDICATION
     Dosage: 6 MG, TID
     Route: 048
     Dates: start: 20180225, end: 20180225
  18. HYDROMORPHONE [Suspect]
     Active Substance: HYDROMORPHONE
     Dosage: 12 MILLIGRAM, TWO TIMES A DAY, 4 MG, TID
     Route: 048
     Dates: start: 20170707
  19. HYDROMORPHONE [Suspect]
     Active Substance: HYDROMORPHONE
     Dosage: 8 MG, QD
     Route: 048
     Dates: start: 20180225, end: 20180225
  20. TAFINLAR [Suspect]
     Active Substance: DABRAFENIB MESYLATE
     Dosage: 300 MILLIGRAM, ONCE A DAY, 150 MG, BID
     Route: 048
     Dates: start: 20161019, end: 20161114
  21. TAFINLAR [Suspect]
     Active Substance: DABRAFENIB MESYLATE
     Dosage: 150 MG, BID
     Route: 048
     Dates: start: 20161123
  22. METOCLOPRAMIDE. [Concomitant]
     Active Substance: METOCLOPRAMIDE
     Dosage: 5 MG, TID
     Route: 048
     Dates: start: 20180227, end: 20180227
  23. ZOFRAN [Concomitant]
     Active Substance: ONDANSETRON HYDROCHLORIDE
     Dosage: 4 MG, QD
     Route: 048
     Dates: start: 20180303, end: 20180303
  24. PREGABA [Concomitant]
     Active Substance: PREGABALIN
     Indication: DEPRESSED MOOD
     Dosage: 75 MILLIGRAM, ONCE A DAY, 75 MG, QD
     Route: 048
     Dates: start: 20170829, end: 20170905
  25. ORTOTON [Concomitant]
     Indication: PRODUCT USED FOR UNKNOWN INDICATION
     Dosage: 750 MILLIGRAM, 750 MG, THREE TIMES AS NEEDED
     Route: 048
     Dates: start: 20180516
  26. PEMBROLIZUMAB. [Concomitant]
     Active Substance: PEMBROLIZUMAB
     Indication: MALIGNANT MELANOMA
     Dosage: 2 MILLIGRAM/KILOGRAM, ONCE A DAY
     Route: 048
     Dates: start: 20180517, end: 20181002
  27. MCP [Concomitant]
     Active Substance: METOCLOPRAMIDE HYDROCHLORIDE
     Indication: MALIGNANT MELANOMA
     Dosage: 30 MILLIGRAM, ONCE A DA, 10 MG, TID
     Route: 048
     Dates: start: 20170118
  28. HYDROMORPHONE [Suspect]
     Active Substance: HYDROMORPHONE
     Dosage: 4 MG, TID
     Route: 048
     Dates: start: 20180516
  29. PALLADON [Concomitant]
     Active Substance: HYDROMORPHONE
     Indication: MALIGNANT MELANOMA
     Dosage: 1.3 MILLIGRAM, 1.3 MG, PRN (UPTO QD AS NEEDED, 2 HOUR MINIMUM IN BETWEEN)
     Route: 048
     Dates: start: 20170407
  30. METOCLOPRAMIDE. [Concomitant]
     Active Substance: METOCLOPRAMIDE
     Dosage: 10 MILLIGRAM, ONCE A DAY, 10 MG, TID
     Route: 048
     Dates: start: 20170118
  31. DEXAMETHASONE. [Concomitant]
     Active Substance: DEXAMETHASONE
     Indication: MALIGNANT MELANOMA
     Dosage: 4 MILLIGRAM, ONCE A DAY, 4 MG, QD
     Route: 048
     Dates: start: 20170829, end: 20171128
  32. PREGABA [Concomitant]
     Active Substance: PREGABALIN
     Dosage: 75 MILLIGRAM, ONCE A DAY, 75 MG, BID
     Route: 048
     Dates: start: 20170906
  33. IPILIMUMAB [Concomitant]
     Active Substance: IPILIMUMAB
     Indication: MALIGNANT MELANOMA
     Dosage: 3 MILLIGRAM/KILOGRAM, 3 TIMES A WEEK
     Route: 042
     Dates: start: 20181024, end: 20181024
  34. ABSTRAL [Concomitant]
     Active Substance: FENTANYL CITRATE
     Indication: MALIGNANT MELANOMA
     Dosage: 800 MICROGRAM, ONCE A DAY
     Route: 048
     Dates: start: 20180516
  35. HYDROMORPHONE [Suspect]
     Active Substance: HYDROMORPHONE
     Dosage: 12 MILLIGRAM, ONCE A DAY, 4 MG, TID
     Route: 048
     Dates: start: 20170707
  36. TAFINLAR [Suspect]
     Active Substance: DABRAFENIB MESYLATE
     Dosage: 150 MG, BID
     Route: 048
     Dates: start: 20161019
  37. IBUPROFEN. [Concomitant]
     Active Substance: IBUPROFEN
     Indication: MALIGNANT MELANOMA
     Dosage: 600 MILLIGRAM, ONCE A DAY, 600 MG, QD
     Route: 048
     Dates: start: 20170214, end: 20170406
  38. METOCLOPRAMIDE. [Concomitant]
     Active Substance: METOCLOPRAMIDE
     Dosage: 300 MILLIGRAM, ONCE A DAY, 10MG, TID
     Route: 048
     Dates: start: 20170118
  39. ZOFRAN [Concomitant]
     Active Substance: ONDANSETRON HYDROCHLORIDE
     Dosage: 4 MG, BID
     Route: 042
     Dates: start: 20180226, end: 20180226
  40. ZOFRAN [Concomitant]
     Active Substance: ONDANSETRON HYDROCHLORIDE
     Dosage: 8 MG, TID
     Route: 048
     Dates: start: 20180312
  41. LAXOBERAL [Concomitant]
     Active Substance: SODIUM PICOSULFATE
     Dosage: 20 DRP, PRN
     Route: 048
     Dates: start: 20180516
  42. DEXAMETHASONE. [Concomitant]
     Active Substance: DEXAMETHASONE
     Indication: INTRACRANIAL PRESSURE INCREASED
     Dosage: 4 MILLIGRAM, ONCE A DAY, 600 MG, QD
     Route: 048
     Dates: start: 20171129
  43. PREGABA [Concomitant]
     Active Substance: PREGABALIN
     Dosage: 75 MG, BID
     Route: 048
     Dates: start: 20180225
  44. TILIDIN [Concomitant]
     Active Substance: NALOXONE HYDROCHLORIDE\TILIDINE HYDROCHLORIDE
     Indication: PRODUCT USED FOR UNKNOWN INDICATION
     Dosage: 50 MILLIGRAM, 50 MG, PRN
     Route: 048
     Dates: start: 20161115, end: 20170406
  45. ZOFRAN [Concomitant]
     Active Substance: ONDANSETRON HYDROCHLORIDE
     Dosage: 4 MG, QD
     Route: 048
     Dates: start: 20180302, end: 20180302
  46. DEXAMETHASONE. [Concomitant]
     Active Substance: DEXAMETHASONE
     Dosage: 4 MG, BID
     Route: 048
     Dates: start: 20180304, end: 20180318
  47. PREGABA [Concomitant]
     Active Substance: PREGABALIN
     Dosage: 150 MILLIGRAM, ONCE A DAY, 150 MG, QD
     Route: 048
     Dates: start: 20171129
  48. PANTOPRAZOL [Concomitant]
     Active Substance: PANTOPRAZOLE SODIUM
     Indication: MALIGNANT MELANOMA
     Dosage: 40 MG, QD
     Route: 048
     Dates: start: 20170829
  49. BETAHISTIN [Concomitant]
     Active Substance: BETAHISTINE
     Dosage: 6 MG, TID
     Route: 048
     Dates: start: 20180226, end: 20180226
  50. CELEBREX [Concomitant]
     Active Substance: CELECOXIB
     Indication: PRODUCT USED FOR UNKNOWN INDICATION
     Dosage: 100 MILLIGRAM, ONCE A DAY
     Route: 048
     Dates: start: 20180302
  51. TAFINLAR [Suspect]
     Active Substance: DABRAFENIB MESYLATE
     Indication: METASTATIC MALIGNANT MELANOMA
     Dosage: 300 MILLIGRAM, ONCE A DAY, 150 MG, BID
     Route: 048
     Dates: start: 20161117
  52. TAFINLAR [Suspect]
     Active Substance: DABRAFENIB MESYLATE
     Dosage: 150 MILLIGRAM, ONCE A DAY
     Route: 048
     Dates: start: 20161117
  53. METOCLOPRAMIDE. [Concomitant]
     Active Substance: METOCLOPRAMIDE
     Dosage: 10 MG, TID
     Dates: start: 20180228, end: 20180303
  54. LAXOBERAL [Concomitant]
     Active Substance: SODIUM PICOSULFATE
     Indication: MALIGNANT MELANOMA
     Dosage: 20 DRP, QD20 GTT DROPS, ONCE A DAY
     Route: 048
     Dates: start: 20170407
  55. DEXAMETHASONE. [Concomitant]
     Active Substance: DEXAMETHASONE
     Dosage: 20 MG, QD
     Route: 042
     Dates: start: 20180225, end: 20180225
  56. DEXAMETHASONE. [Concomitant]
     Active Substance: DEXAMETHASONE
     Dosage: 4 MG, TID
     Route: 048
     Dates: start: 20180302, end: 20180303
  57. LAXANS [Concomitant]
     Indication: PRODUCT USED FOR UNKNOWN INDICATION
     Dosage: 15 GTT DROPS, ONCE A DAY
     Route: 048
     Dates: start: 20180225, end: 20180303
  58. TRAMETINIB [Suspect]
     Active Substance: TRAMETINIB
     Indication: METASTATIC MALIGNANT MELANOMA
     Dosage: 2 MILLIGRAM, ONCE A DAY, 2 MG, QD
     Route: 048
     Dates: start: 20161019
  59. PALLADON [Concomitant]
     Active Substance: HYDROMORPHONE
     Indication: MALIGNANT MELANOMA
  60. ZOFRAN [Concomitant]
     Active Substance: ONDANSETRON HYDROCHLORIDE
     Indication: MALIGNANT MELANOMA
     Dosage: 8 MILLIGRAM, ONCE A DAY, 8 MG, BID
     Route: 048
     Dates: start: 20161115
  61. ZOFRAN [Concomitant]
     Active Substance: ONDANSETRON HYDROCHLORIDE
     Dosage: 8 MILLIGRAM, 8 MG, PRN
     Route: 048
     Dates: start: 20170308
  62. DEXAMETHASONE. [Concomitant]
     Active Substance: DEXAMETHASONE
     Dosage: 8 MG, QD
     Route: 042
     Dates: start: 20180225, end: 20180225

REACTIONS (5)
  - Metastatic malignant melanoma [Fatal]
  - Constipation [Unknown]
  - Abdominal pain [Recovered/Resolved]
  - Intracranial pressure increased [Recovered/Resolved]
  - Malignant neoplasm progression [Fatal]

NARRATIVE: CASE EVENT DATE: 20170829
